FAERS Safety Report 5777249-9 (Version None)
Quarter: 2008Q2

REPORT INFORMATION
  Report Type: 
  Country: None (occurrence: None)
  Receive Date: 20080616
  Receipt Date: 20080603
  Transmission Date: 20081010
  Serious: Yes (Death)
  Sender: FDA-Public Use
  Company Number: 2008AL006281

PATIENT
  Age: 72 Year
  Sex: Male

DRUGS (1)
  1. DIGOXIN [Suspect]
     Indication: ATRIAL FIBRILLATION
     Dates: end: 20060510

REACTIONS (2)
  - ANOREXIA [None]
  - ASTHENIA [None]
